FAERS Safety Report 7440014-0 (Version None)
Quarter: 2011Q2

REPORT INFORMATION
  Report Type: 
  Country: None (occurrence: None)
  Receive Date: 20110427
  Receipt Date: 20110414
  Transmission Date: 20111010
  Serious: Yes (Hospitalization)
  Sender: FDA-Public Use
  Company Number: EG-GENENTECH-317264

PATIENT
  Age: 44 Year
  Sex: Male
  Weight: 85 kg

DRUGS (3)
  1. LUCENTIS [Suspect]
     Dosage: 0.5 MG, UNK
     Route: 031
  2. LUCENTIS [Suspect]
     Indication: DIABETIC RETINOPATHY
     Dosage: 0.05 MG, UNK
     Route: 031
  3. LUCENTIS [Suspect]
     Dosage: 0.05 MG, UNK
     Route: 031
     Dates: start: 20110406

REACTIONS (2)
  - DRUG HYPERSENSITIVITY [None]
  - HYPOPYON [None]
